FAERS Safety Report 4999777-6 (Version None)
Quarter: 2006Q2

REPORT INFORMATION
  Report Type: 
  Country: None (occurrence: None)
  Receive Date: 20060511
  Receipt Date: 20060322
  Transmission Date: 20061013
  Serious: Yes (Other)
  Sender: FDA-Public Use
  Company Number: DE-GLAXOSMITHKLINE-D0049157A

PATIENT
  Age: 73 Year
  Sex: Female

DRUGS (2)
  1. REQUIP [Suspect]
     Indication: PARKINSON'S DISEASE
     Dosage: 2MG TWICE PER DAY
     Route: 048
     Dates: start: 20040901
  2. ASPIRIN [Concomitant]
     Indication: HEADACHE
     Route: 065

REACTIONS (14)
  - ABNORMAL DREAMS [None]
  - ABNORMAL FAECES [None]
  - ASTHENIA [None]
  - DAYDREAMING [None]
  - DISTURBANCE IN ATTENTION [None]
  - EXERCISE TOLERANCE DECREASED [None]
  - FATIGUE [None]
  - ILLUSION [None]
  - MALAISE [None]
  - NASAL DRYNESS [None]
  - OEDEMA PERIPHERAL [None]
  - SUDDEN ONSET OF SLEEP [None]
  - TREMOR [None]
  - YAWNING [None]
